FAERS Safety Report 6893262-2 (Version None)
Quarter: 2010Q3

REPORT INFORMATION
  Report Type: 
  Country: None (occurrence: None)
  Receive Date: 20100731
  Receipt Date: 20090720
  Transmission Date: 20110219
  Serious: No
  Sender: FDA-Public Use
  Company Number: US-PFIZER INC-2009244880

PATIENT
  Sex: Female

DRUGS (3)
  1. NEURONTIN [Suspect]
     Indication: FEELING OF BODY TEMPERATURE CHANGE
     Dosage: 100 MG, 2X/DAY
     Dates: start: 20090708
  2. NEURONTIN [Suspect]
     Dosage: FREQUENCY: 2X/DAY, EVERYDAY;
     Dates: start: 20090705, end: 20090707
  3. GABAPENTIN [Suspect]
     Indication: FEELING OF BODY TEMPERATURE CHANGE
     Dosage: 100 MG, 2X/DAY
     Dates: start: 20090705, end: 20090707

REACTIONS (4)
  - BURNING SENSATION [None]
  - DRUG INEFFECTIVE [None]
  - FEELING HOT [None]
  - PARAESTHESIA [None]
